FAERS Safety Report 26196956 (Version 1)
Quarter: 2025Q4

REPORT INFORMATION
  Report Type: Report from Study
  Country: EU (occurrence: EU)
  Receive Date: 20251224
  Receipt Date: 20251224
  Transmission Date: 20260117
  Serious: Yes (Other)
  Sender: ROCHE
  Company Number: EU-ROCHE-10000465422

PATIENT
  Age: 73 Year
  Sex: Female
  Weight: 61 kg

DRUGS (1)
  1. PHESGO [Suspect]
     Active Substance: HYALURONIDASE-ZZXF\PERTUZUMAB\TRASTUZUMAB
     Indication: Breast cancer
     Dosage: MORE DOSAGE INFO: PHESGO 600 MG/600 MG, SOLUTION FOR INJECTION 1 VIAL 10 ML
     Route: 058

REACTIONS (3)
  - Pneumonia [Unknown]
  - Full blood count abnormal [Unknown]
  - White blood cell count increased [Unknown]
